FAERS Safety Report 8609670-5 (Version None)
Quarter: 2012Q3

REPORT INFORMATION
  Report Type: 
  Country: None (occurrence: None)
  Receive Date: 20120821
  Receipt Date: 20120813
  Transmission Date: 20120928
  Serious: Yes (Other)
  Sender: FDA-Public Use
  Company Number: PHHY2012IN070038

PATIENT
  Age: 38 Year
  Sex: Female

DRUGS (1)
  1. CEFTRIAXONE [Suspect]
     Indication: CELLULITIS
     Dosage: 1 G, BID
     Route: 042

REACTIONS (4)
  - BLOOD PRESSURE DECREASED [None]
  - BLISTER [None]
  - TOXIC EPIDERMAL NECROLYSIS [None]
  - DISORIENTATION [None]
